FAERS Safety Report 9935653 (Version 1)
Quarter: 2014Q1

REPORT INFORMATION
  Report Type: Spontaneous
  Country: GB (occurrence: GB)
  Receive Date: 20140228
  Receipt Date: 20140228
  Transmission Date: 20141002
  Serious: Yes (Hospitalization)
  Sender: FDA-Public Use
  Company Number: PHHY2014GB024641

PATIENT
  Age: 23 Year
  Sex: Female

DRUGS (3)
  1. STALEVO [Suspect]
     Indication: PARKINSON^S DISEASE
     Dosage: 200 MG, DAILY
     Route: 048
  2. STALEVO [Suspect]
     Dosage: 350 MG, DAILY (150 MG THORUGHT A DAY AND 200 MG IN NIGHT)
     Route: 048
  3. SELEGILINE [Concomitant]
     Indication: DYSKINESIA
     Dosage: UNK UKN, UNK

REACTIONS (5)
  - Cerebrovascular accident [Unknown]
  - Product physical issue [Unknown]
  - Product quality issue [Unknown]
  - Dysphagia [Unknown]
  - Drug effect decreased [Unknown]
